FAERS Safety Report 19745227 (Version 1)
Quarter: 2021Q3

REPORT INFORMATION
  Report Type: Spontaneous
  Country: SE (occurrence: SE)
  Receive Date: 20210825
  Receipt Date: 20210825
  Transmission Date: 20211014
  Serious: Yes (Life-Threatening, Other)
  Sender: FDA-Public Use
  Company Number: SE-MYLANLABS-2021M1055748

PATIENT
  Age: 48 Year
  Sex: Male

DRUGS (2)
  1. CORTISONE [Suspect]
     Active Substance: CORTISONE
     Indication: COCCIDIOIDOMYCOSIS
     Dosage: UNK
  2. FLUCONAZOLE. [Suspect]
     Active Substance: FLUCONAZOLE
     Indication: COCCIDIOIDOMYCOSIS
     Dosage: UNK

REACTIONS (1)
  - Drug ineffective [Unknown]
